FAERS Safety Report 9876596 (Version 2)
Quarter: 2014Q1

REPORT INFORMATION
  Report Type: Other
  Country: US (occurrence: US)
  Receive Date: 20140206
  Receipt Date: 20140206
  Transmission Date: 20141002
  Serious: No
  Sender: FDA-Public Use
  Company Number: US-ACORDA-ACO_35599_2013

PATIENT
  Age: 54 Year
  Sex: Female
  Weight: 77.98 kg

DRUGS (19)
  1. AMPYRA [Suspect]
     Indication: GAIT DISTURBANCE
     Dosage: 10 MG, BID
     Route: 048
     Dates: start: 20100611, end: 20130730
  2. AMPYRA [Suspect]
     Dosage: UNK
  3. MORPHINE SULFATE [Concomitant]
     Indication: PRODUCT USED FOR UNKNOWN INDICATION
     Dosage: UNK
  4. TRIAMCINOLONE ACETONIDE [Concomitant]
     Indication: PRODUCT USED FOR UNKNOWN INDICATION
     Dosage: UNK
  5. RELPAX [Concomitant]
     Indication: PRODUCT USED FOR UNKNOWN INDICATION
     Dosage: UNK
  6. PROAIR [Concomitant]
     Indication: PRODUCT USED FOR UNKNOWN INDICATION
     Dosage: UNK
  7. SENNA [Concomitant]
     Indication: PRODUCT USED FOR UNKNOWN INDICATION
     Dosage: UNK
  8. AMITRIPTYLINE HCL [Concomitant]
     Indication: PRODUCT USED FOR UNKNOWN INDICATION
     Dosage: UNK
  9. LYRICA [Concomitant]
     Indication: PRODUCT USED FOR UNKNOWN INDICATION
     Dosage: UNK
  10. OMEPRAZOLE [Concomitant]
     Indication: PRODUCT USED FOR UNKNOWN INDICATION
     Dosage: UNK
  11. REBIF [Concomitant]
     Indication: PRODUCT USED FOR UNKNOWN INDICATION
     Dosage: UNK
  12. ALBUTEROL [Concomitant]
     Dosage: UNK
  13. SYMBICORT [Concomitant]
     Dosage: UNK
  14. CALCIUM PLUS D3 [Concomitant]
     Dosage: UNK
  15. GLUCOSAMINE + CHONDROITIN [Concomitant]
     Dosage: UNK
  16. PARASOL SUNTAN [Concomitant]
     Dosage: UNK
  17. CLARITIN [Concomitant]
     Dosage: UNK
  18. OMEGA 3 [Concomitant]
     Dosage: UNK
  19. MULTIVITAMIN [Concomitant]
     Dosage: UNK

REACTIONS (2)
  - Muscle spasms [Recovered/Resolved]
  - Multiple sclerosis [Unknown]
